FAERS Safety Report 9817145 (Version 2)
Quarter: 2014Q2

REPORT INFORMATION
  Report Type: Spontaneous
  Country: GB (occurrence: GB)
  Receive Date: 20140114
  Receipt Date: 20140403
  Transmission Date: 20141212
  Serious: Yes (Disabling)
  Sender: FDA-Public Use
  Company Number: GB-ABBVIE-14P-167-1188636-00

PATIENT
  Age: 57 Year
  Sex: Male

DRUGS (2)
  1. DEPAKOTE [Suspect]
     Indication: BIPOLAR DISORDER
     Route: 048
     Dates: start: 201211
  2. VENLAFAXINE [Suspect]
     Indication: PRODUCT USED FOR UNKNOWN INDICATION

REACTIONS (2)
  - Erectile dysfunction [Not Recovered/Not Resolved]
  - Penile size reduced [Not Recovered/Not Resolved]
